FAERS Safety Report 8419187-9 (Version None)
Quarter: 2012Q2

REPORT INFORMATION
  Report Type: 
  Country: None (occurrence: None)
  Receive Date: 20120607
  Receipt Date: 20120603
  Transmission Date: 20120825
  Serious: Yes (Hospitalization)
  Sender: FDA-Public Use
  Company Number: IL-SANOFI-AVENTIS-2012SA034392

PATIENT
  Age: 84 Year
  Sex: Male
  Weight: 74.6 kg

DRUGS (21)
  1. SIMVASTATIN [Concomitant]
     Route: 048
     Dates: start: 20070610
  2. PERCOCET [Concomitant]
     Route: 048
     Dates: start: 20120103
  3. CABAZITAXEL [Suspect]
     Route: 042
     Dates: start: 20120429, end: 20120429
  4. FUROSEMIDE [Concomitant]
     Route: 048
     Dates: start: 20110724
  5. ZOLEDRONIC ACID [Concomitant]
     Route: 041
     Dates: start: 20110922
  6. COZAAR [Concomitant]
     Route: 048
     Dates: start: 20111201
  7. AMBIEN [Concomitant]
     Route: 048
     Dates: start: 20110921
  8. SPIRONOLACTONE [Concomitant]
     Route: 048
     Dates: start: 20090109
  9. PERCOCET [Concomitant]
     Route: 048
     Dates: start: 20120103
  10. OPTALGIN [Concomitant]
     Route: 048
     Dates: start: 20120103
  11. CALCIUM PHOSPHATE/CALCIUM SODIUM LACTATE/ERGOCALCIFEROL [Concomitant]
     Route: 048
     Dates: start: 20120103
  12. BISOPROLOL FUMARATE [Concomitant]
     Route: 048
     Dates: start: 20090329
  13. GLIMEPIRIDE [Concomitant]
     Route: 048
     Dates: start: 20101003
  14. VITAMIN TAB [Concomitant]
     Route: 048
     Dates: start: 20120407
  15. CLONEX [Concomitant]
     Route: 048
     Dates: start: 20081027
  16. LEUPROLIDE ACETATE [Concomitant]
     Route: 065
     Dates: start: 20110202
  17. CABAZITAXEL [Suspect]
     Indication: PROSTATE CANCER METASTATIC
     Route: 042
     Dates: start: 20120205, end: 20120205
  18. PREDNISONE [Suspect]
     Indication: PROSTATE CANCER METASTATIC
     Route: 048
     Dates: start: 20120205, end: 20120509
  19. ACETYLSALICYLIC ACID SRT [Concomitant]
     Route: 048
     Dates: start: 20060101
  20. DIGOXIN [Concomitant]
     Route: 048
     Dates: start: 20010612
  21. IXEL [Concomitant]
     Route: 048
     Dates: start: 20090122

REACTIONS (1)
  - HAEMATURIA [None]
